FAERS Safety Report 8513293-6 (Version None)
Quarter: 2012Q3

REPORT INFORMATION
  Report Type: 
  Country: None (occurrence: None)
  Receive Date: 20120716
  Receipt Date: 20120712
  Transmission Date: 20120928
  Serious: Yes (Hospitalization)
  Sender: FDA-Public Use
  Company Number: IT-ROCHE-1043741

PATIENT
  Age: 74 Year
  Sex: Female

DRUGS (1)
  1. VEMURAFENIB [Suspect]
     Indication: MALIGNANT MELANOMA
     Dosage: DATE OF LAST DOSE PRIOR TO EVENT: 21/FEB/2012
     Route: 048
     Dates: start: 20120104, end: 20120222

REACTIONS (1)
  - CARDIAC FAILURE [None]
